FAERS Safety Report 6162014-3 (Version None)
Quarter: 2009Q2

REPORT INFORMATION
  Report Type: 
  Country: None (occurrence: None)
  Receive Date: 20090417
  Receipt Date: 20090417
  Transmission Date: 20091009
  Serious: Yes (Hospitalization)
  Sender: FDA-Public Use
  Company Number: None

PATIENT
  Age: 62 Year
  Sex: Male
  Weight: 93 kg

DRUGS (1)
  1. GLEEVEC [Suspect]
     Indication: GASTRIC CANCER
     Dosage: 400 MG ONCE DAILY PO
     Route: 048

REACTIONS (4)
  - DERMATITIS BULLOUS [None]
  - DISEASE RECURRENCE [None]
  - EYE SWELLING [None]
  - NEOPLASM MALIGNANT [None]
